FAERS Safety Report 13213459 (Version 1)
Quarter: 2017Q1

REPORT INFORMATION
  Report Type: Spontaneous
  Country: US (occurrence: US)
  Receive Date: 20170209
  Receipt Date: 20170209
  Transmission Date: 20170428
  Serious: No
  Sender: FDA-Public Use
  Company Number: US-ELI_LILLY_AND_COMPANY-US201702002625

PATIENT
  Sex: Male

DRUGS (2)
  1. FORTEO [Suspect]
     Active Substance: TERIPARATIDE
     Indication: OSTEOPENIA
     Dosage: UNK UNK, QDD
     Route: 065
     Dates: start: 201510, end: 201605
  2. FORTEO [Suspect]
     Active Substance: TERIPARATIDE
     Dosage: UNK UNK, QDD
     Route: 065
     Dates: start: 201610

REACTIONS (2)
  - Off label use [Unknown]
  - Hiccups [Unknown]

NARRATIVE: CASE EVENT DATE: 201510
